FAERS Safety Report 26200788 (Version 1)
Quarter: 2025Q4

REPORT INFORMATION
  Report Type: Report from Study
  Country: EU (occurrence: EU)
  Receive Date: 20251226
  Receipt Date: 20251226
  Transmission Date: 20260118
  Serious: Yes (Other)
  Sender: ABBVIE
  Company Number: EU-ABBVIE-6604226

PATIENT
  Age: 48 Year
  Sex: Male

DRUGS (1)
  1. FOSCARBIDOPA\FOSLEVODOPA [Suspect]
     Active Substance: FOSCARBIDOPA\FOSLEVODOPA
     Indication: Parkinson^s disease
     Dosage: SPEED OF 0.25 DURING THE DAY AND 0.23 AT NIGHT
     Route: 058
     Dates: start: 20250513

REACTIONS (5)
  - Loss of consciousness [Recovering/Resolving]
  - Dyskinesia [Not Recovered/Not Resolved]
  - Syncope [Recovered/Resolved]
  - Dizziness [Recovering/Resolving]
  - Influenza [Recovering/Resolving]

NARRATIVE: CASE EVENT DATE: 20250101
